FAERS Safety Report 8318713 (Version 2)
Quarter: 2013Q1

REPORT INFORMATION
  Report Type: Spontaneous
  Country: US (occurrence: US)
  Receive Date: 20120103
  Receipt Date: 20130220
  Transmission Date: 20140127
  Serious: Yes (Life-Threatening, Congenital Anomaly, Other)
  Sender: FDA-Public Use
  Company Number: US-PFIZER INC-2011289492

PATIENT
  Sex: Male

DRUGS (5)
  1. ZOLOFT [Suspect]
     Dosage: UNK
     Route: 064
     Dates: start: 2010
  2. NITROFURANTOIN [Concomitant]
     Dosage: UNK
     Route: 064
  3. MACROBID [Concomitant]
     Dosage: UNK
     Route: 064
  4. ZANTAC [Concomitant]
     Dosage: UNK
     Route: 064
  5. SERTRALINE [Concomitant]
     Dosage: UNK
     Route: 064

REACTIONS (2)
  - Maternal exposure timing unspecified [Unknown]
  - Hypospadias [Unknown]
